FAERS Safety Report 7528843-6 (Version None)
Quarter: 2011Q2

REPORT INFORMATION
  Report Type: 
  Country: None (occurrence: None)
  Receive Date: 20110607
  Receipt Date: 20100517
  Transmission Date: 20111010
  Serious: No
  Sender: FDA-Public Use
  Company Number: US-ASTRAZENECA-2010SE23388

PATIENT

DRUGS (6)
  1. CALCIUM CARBONATE [Concomitant]
  2. ACTONEL [Concomitant]
  3. VITAMIN A [Concomitant]
  4. PRILOSEC OTC [Suspect]
     Route: 048
     Dates: start: 20070101
  5. TORADOL [Concomitant]
  6. CRESTOR [Concomitant]

REACTIONS (2)
  - THROMBOCYTOPENIA [None]
  - INCORRECT DRUG ADMINISTRATION DURATION [None]
